FAERS Safety Report 7814842-3 (Version None)
Quarter: 2011Q4

REPORT INFORMATION
  Report Type: 
  Country: None (occurrence: None)
  Receive Date: 20111014
  Receipt Date: 20110929
  Transmission Date: 20120403
  Serious: Yes (Hospitalization)
  Sender: FDA-Public Use
  Company Number: SE-ROCHE-798687

PATIENT
  Age: 215 Week
  Sex: Female

DRUGS (3)
  1. PREDNISOLONE [Suspect]
     Indication: JUVENILE ARTHRITIS
     Route: 048
  2. ACTEMRA [Suspect]
     Indication: JUVENILE ARTHRITIS
     Dosage: STRENGTH: 20 MG/ML
     Route: 042
     Dates: start: 20110101, end: 20110629
  3. METHOTREXATE [Suspect]
     Indication: JUVENILE ARTHRITIS
     Dosage: STRENGTH : 2.5 MG
     Route: 048
     Dates: start: 20110201, end: 20110701

REACTIONS (2)
  - HISTIOCYTOSIS HAEMATOPHAGIC [None]
  - SEPSIS [None]
